FAERS Safety Report 6228250-2 (Version None)
Quarter: 2009Q2

REPORT INFORMATION
  Report Type: 
  Country: None (occurrence: None)
  Receive Date: 20090610
  Receipt Date: 20090610
  Transmission Date: 20091009
  Serious: Yes (Hospitalization)
  Sender: FDA-Public Use
  Company Number: None

PATIENT
  Sex: Female
  Weight: 134 kg

DRUGS (4)
  1. VANCOMYCIN [Suspect]
     Indication: CELLULITIS
     Dosage: 2GM Q12 IV
     Route: 042
     Dates: start: 20090604, end: 20090605
  2. VANCOMYCIN [Suspect]
     Indication: SEPSIS
     Dosage: 2GM Q12 IV
     Route: 042
     Dates: start: 20090604, end: 20090605
  3. INVANZ [Suspect]
     Indication: CELLULITIS
     Dosage: 1 GM Q24 IV
     Route: 042
     Dates: start: 20090605
  4. INVANZ [Suspect]
     Indication: SEPSIS
     Dosage: 1 GM Q24 IV
     Route: 042
     Dates: start: 20090605

REACTIONS (3)
  - INJURY [None]
  - RASH [None]
  - SHOCK [None]
